FAERS Safety Report 9110856 (Version 1)
Quarter: 2013Q1

REPORT INFORMATION
  Report Type: Spontaneous
  Country: US (occurrence: US)
  Receive Date: 20130219
  Receipt Date: 20130219
  Transmission Date: 20140127
  Serious: No
  Sender: FDA-Public Use
  Company Number: US-BRISTOL-MYERS SQUIBB COMPANY-16756124

PATIENT
  Age: 71 Year
  Sex: Female
  Weight: 53.51 kg

DRUGS (13)
  1. ORENCIA [Suspect]
     Indication: RHEUMATOID ARTHRITIS
     Dosage: IVPB?LAST INF IN AUG-2012
     Route: 042
     Dates: start: 201204, end: 201209
  2. DIOVAN [Concomitant]
  3. WARFARIN [Concomitant]
  4. XANAX [Concomitant]
  5. FLEXERIL [Concomitant]
  6. ASPIRIN [Concomitant]
  7. DIGOXIN [Concomitant]
  8. JANUVIA [Concomitant]
  9. PREDNISONE [Concomitant]
  10. PRAVASTATIN SODIUM [Concomitant]
  11. GLIMEPIRIDE [Concomitant]
  12. CARDIAZEM [Concomitant]
  13. BENADRYL [Concomitant]

REACTIONS (7)
  - Hypersensitivity [Unknown]
  - Neck mass [Unknown]
  - Middle insomnia [Unknown]
  - Fatigue [Unknown]
  - Drug dose omission [Unknown]
  - Drug ineffective [Unknown]
  - Weight decreased [Unknown]
